FAERS Safety Report 7529253-8 (Version None)
Quarter: 2011Q2

REPORT INFORMATION
  Report Type: 
  Country: None (occurrence: None)
  Receive Date: 20110607
  Receipt Date: 20110526
  Transmission Date: 20111010
  Serious: Yes (Hospitalization)
  Sender: FDA-Public Use
  Company Number: JP-PFIZER INC-2011109211

PATIENT
  Age: 48 Year
  Sex: Female
  Weight: 50 kg

DRUGS (6)
  1. TOKISHAKUYAKUSAN [Concomitant]
     Indication: MENOPAUSAL SYMPTOMS
     Dosage: 2X/DAY
     Route: 048
     Dates: start: 20100709
  2. CAMPTOSAR [Suspect]
     Indication: LARGE INTESTINE CARCINOMA
     Dosage: 290MG/BODY (220 MG/M2)
     Route: 041
     Dates: start: 20110510, end: 20110510
  3. DECADRON [Concomitant]
     Indication: PREMEDICATION
     Dosage: 6.6 MG, UNK
     Route: 041
     Dates: start: 20110510, end: 20110510
  4. GRANISETRON [Concomitant]
     Indication: PREMEDICATION
     Dosage: UNK
     Route: 041
     Dates: start: 20110510, end: 20110510
  5. CALCIUM LEVOFOLINATE [Concomitant]
     Indication: LARGE INTESTINE CARCINOMA
     Dosage: 217.5 MG/BODY (150 MG/M2)
     Route: 041
     Dates: start: 20110510, end: 20110510
  6. GRANDAXIN [Concomitant]
     Indication: MENOPAUSAL SYMPTOMS
     Dosage: 50 MG, 3X/DAY
     Route: 048
     Dates: start: 20100618

REACTIONS (1)
  - MUSCLE SPASMS [None]
